FAERS Safety Report 6471206-5 (Version None)
Quarter: 2009Q4

REPORT INFORMATION
  Report Type: 
  Country: None (occurrence: None)
  Receive Date: 20091203
  Receipt Date: 20080514
  Transmission Date: 20100525
  Serious: Yes (Hospitalization)
  Sender: FDA-Public Use
  Company Number: GB-ELI_LILLY_AND_COMPANY-GB200802001745

PATIENT
  Sex: Female
  Weight: 83.5 kg

DRUGS (7)
  1. BYETTA [Suspect]
     Indication: TYPE 2 DIABETES MELLITUS
     Dosage: 10 UG, 2/D
     Route: 058
  2. METFORMIN HCL [Concomitant]
     Dosage: 2 G, UNKNOWN
     Route: 065
  3. THYROXIN [Concomitant]
     Dosage: 150 UG, UNKNOWN
     Route: 065
  4. ASPIRIN [Concomitant]
     Dosage: 75 MG, UNKNOWN
     Route: 065
  5. ROSUVASTATIN [Concomitant]
     Dosage: 40 MG, UNKNOWN
     Route: 065
  6. PERINDOPRIL [Concomitant]
     Dosage: 4 MG, UNKNOWN
     Route: 065
  7. CO-AMILOFRUSE [Concomitant]
     Dosage: UNK, UNKNOWN
     Route: 065

REACTIONS (1)
  - GROIN PAIN [None]
